FAERS Safety Report 14840076 (Version 3)
Quarter: 2018Q3

REPORT INFORMATION
  Report Type: Spontaneous
  Country: AU (occurrence: AU)
  Receive Date: 20180503
  Receipt Date: 20180706
  Transmission Date: 20181010
  Serious: Yes (Other)
  Sender: FDA-Public Use
  Company Number: AU-REGENERON PHARMACEUTICALS, INC.-2018-22469

PATIENT

DRUGS (4)
  1. EYLEA [Suspect]
     Active Substance: AFLIBERCEPT
     Dosage: 0.5 DF, ONCE
     Dates: start: 2018, end: 2018
  2. EYLEA [Suspect]
     Active Substance: AFLIBERCEPT
     Indication: PRODUCT USED FOR UNKNOWN INDICATION
     Dosage: UNK
     Dates: start: 2015
  3. EYLEA [Suspect]
     Active Substance: AFLIBERCEPT
     Dosage: 0.5 DF, ONCE
     Dates: start: 2018, end: 2018
  4. EYLEA [Suspect]
     Active Substance: AFLIBERCEPT
     Dosage: 0.5 DF, ONCE
     Dates: start: 2018, end: 2018

REACTIONS (4)
  - Blindness transient [Recovering/Resolving]
  - Product quality issue [Unknown]
  - Underdose [Unknown]
  - Anxiety [Unknown]

NARRATIVE: CASE EVENT DATE: 2018
